FAERS Safety Report 5587617-6 (Version None)
Quarter: 2008Q1

REPORT INFORMATION
  Report Type: 
  Country: None (occurrence: None)
  Receive Date: 20080110
  Receipt Date: 20071231
  Transmission Date: 20080703
  Serious: Yes (Death)
  Sender: FDA-Public Use
  Company Number: US-MERCK-0801USA00490

PATIENT
  Age: 65 Year
  Sex: Male

DRUGS (14)
  1. HYDROCORTONE [Suspect]
     Route: 048
  2. RISPERIDONE [Suspect]
     Route: 048
  3. METAXALONE [Suspect]
     Route: 048
  4. HEPARIN [Suspect]
     Route: 048
  5. OXYCODONE [Suspect]
     Route: 048
  6. ESCITALOPRAM [Suspect]
     Route: 048
  7. BUPROPION HYDROCHLORIDE [Suspect]
     Route: 048
  8. CLONIDINE [Suspect]
     Route: 048
  9. METHADONE HYDROCHLORIDE [Suspect]
     Route: 048
  10. ALBUTEROL [Suspect]
     Route: 048
  11. HALOPERIDOL [Suspect]
     Route: 048
  12. ACYCLOVIR [Suspect]
     Route: 048
  13. VANCOMYCIN [Suspect]
     Route: 048
  14. LAMOTRIGINE [Suspect]
     Route: 048

REACTIONS (2)
  - DRUG TOXICITY [None]
  - OVERDOSE [None]
